FAERS Safety Report 5596182-9 (Version None)
Quarter: 2008Q1

REPORT INFORMATION
  Report Type: 
  Country: None (occurrence: None)
  Receive Date: 20080118
  Receipt Date: 20071227
  Transmission Date: 20080703
  Serious: Yes (Hospitalization, Other)
  Sender: FDA-Public Use
  Company Number: CH-ABBOTT-08P-151-0432138-00

PATIENT
  Age: 60 Year
  Sex: Female

DRUGS (4)
  1. KLACID [Suspect]
     Indication: GASTRIC ULCER
     Route: 048
     Dates: start: 20071118, end: 20071127
  2. ATORVASTATIN CALCIUM [Interacting]
     Indication: HYPERCHOLESTEROLAEMIA
     Route: 048
  3. AMOXICILLIN [Concomitant]
     Indication: GASTRIC ULCER
     Route: 048
     Dates: start: 20071118, end: 20071127
  4. ESOMEPRAZOLE MAGNESIUM [Concomitant]
     Indication: GASTRIC ULCER
     Route: 048

REACTIONS (8)
  - BLOOD CREATINE PHOSPHOKINASE INCREASED [None]
  - DRUG INTERACTION [None]
  - DRUG LEVEL INCREASED [None]
  - HAEMATURIA [None]
  - HEPATIC ENZYME INCREASED [None]
  - LIVER INJURY [None]
  - MOBILITY DECREASED [None]
  - MYALGIA [None]
